FAERS Safety Report 26214356 (Version 1)
Quarter: 2025Q4

REPORT INFORMATION
  Report Type: Spontaneous
  Country: US (occurrence: US)
  Receive Date: 20251230
  Receipt Date: 20251230
  Transmission Date: 20260117
  Serious: Yes (Life-Threatening, Hospitalization, Other)
  Sender: CIPLA
  Company Number: US-MLMSERVICE-20251212-PI747079-00224-2

PATIENT

DRUGS (7)
  1. MIDAZOLAM [Interacting]
     Active Substance: MIDAZOLAM
     Indication: Sedative therapy
     Dosage: 15 MILLIGRAM (5 MG/KG, MAX 15 MG)
     Route: 048
  2. KETAMINE [Interacting]
     Active Substance: KETAMINE
     Indication: Sedative therapy
     Dosage: 199.2 MILLIGRAM (6 MG/KG)
     Route: 048
  3. GUANFACINE [Interacting]
     Active Substance: GUANFACINE
     Indication: Product used for unknown indication
     Dosage: 1 MILLIGRAM, (PATIENT TOOK THAT MORNING)
     Route: 065
  4. METHYLPHENIDATE [Interacting]
     Active Substance: METHYLPHENIDATE
     Indication: Product used for unknown indication
     Dosage: 20 MILLIGRAM (PATIENT TOOK THAT MORNING)
     Route: 065
  5. FERROUS SULFATE [Concomitant]
     Active Substance: FERROUS SULFATE
     Indication: Product used for unknown indication
     Dosage: 20 MILLIGRAM (PATIENT DID NOT TAKE)
     Route: 065
  6. CETIRIZINE [Concomitant]
     Active Substance: CETIRIZINE HYDROCHLORIDE
     Indication: Product used for unknown indication
     Dosage: 20 MILLIGRAM (PATIENT DID NOT TAKE)
     Route: 065
  7. MELATONIN [Concomitant]
     Active Substance: MELATONIN
     Indication: Product used for unknown indication
     Dosage: 20 MILLIGRAM (PATIENT DID NOT TAKE)
     Route: 065

REACTIONS (4)
  - Sedation complication [Recovered/Resolved]
  - Drug interaction [Recovered/Resolved]
  - Respiratory depression [Recovered/Resolved]
  - Upper airway obstruction [Recovered/Resolved]
